FAERS Safety Report 25171542 (Version 1)
Quarter: 2025Q2

REPORT INFORMATION
  Report Type: Spontaneous
  Country: RU (occurrence: RU)
  Receive Date: 20250408
  Receipt Date: 20250408
  Transmission Date: 20250717
  Serious: Yes (Death, Other)
  Sender: JOHNSON AND JOHNSON
  Company Number: RU-JNJFOC-20250409162

PATIENT
  Age: 67 Year
  Sex: Female

DRUGS (13)
  1. DARZALEX [Suspect]
     Active Substance: DARATUMUMAB
     Indication: Plasma cell leukaemia
     Route: 065
     Dates: start: 20221021
  2. DARZALEX [Suspect]
     Active Substance: DARATUMUMAB
     Route: 065
     Dates: start: 20221122
  3. DARZALEX [Suspect]
     Active Substance: DARATUMUMAB
     Route: 065
     Dates: start: 20221220
  4. DARZALEX [Suspect]
     Active Substance: DARATUMUMAB
     Route: 065
     Dates: start: 20230105
  5. DARZALEX [Suspect]
     Active Substance: DARATUMUMAB
     Route: 065
     Dates: start: 20230421, end: 20240620
  6. BORTEZOMIB [Suspect]
     Active Substance: BORTEZOMIB
     Indication: Plasma cell leukaemia
     Route: 065
  7. DOXORUBICIN [Suspect]
     Active Substance: DOXORUBICIN
     Indication: Plasma cell leukaemia
     Route: 065
  8. DEXAMETHASONE [Suspect]
     Active Substance: DEXAMETHASONE
     Indication: Plasma cell leukaemia
     Route: 065
  9. DEXAMETHASONE [Suspect]
     Active Substance: DEXAMETHASONE
     Route: 065
     Dates: start: 20230421, end: 20240620
  10. LENALIDOMIDE [Suspect]
     Active Substance: LENALIDOMIDE
     Indication: Plasma cell leukaemia
     Route: 065
     Dates: start: 20221220
  11. CARBOPLATIN [Suspect]
     Active Substance: CARBOPLATIN
     Indication: Plasma cell leukaemia
     Route: 065
     Dates: start: 20230203
  12. CYTARABINE [Suspect]
     Active Substance: CYTARABINE
     Indication: Plasma cell leukaemia
     Route: 065
     Dates: start: 20230203
  13. IXAZOMIB [Suspect]
     Active Substance: IXAZOMIB
     Indication: Plasma cell leukaemia
     Route: 065
     Dates: start: 20230421, end: 20240620

REACTIONS (20)
  - Death [Fatal]
  - Tumour lysis syndrome [Recovered/Resolved]
  - Klebsiella sepsis [Unknown]
  - Clostridium colitis [Unknown]
  - Enterococcal infection [Unknown]
  - Post infection glomerulonephritis [Unknown]
  - Toxic skin eruption [Unknown]
  - Thrombocytopenia [Unknown]
  - Polyneuropathy [Unknown]
  - Neutropenia [Unknown]
  - Hypoproteinaemia [Unknown]
  - Hypoalbuminaemia [Unknown]
  - Anaemia [Unknown]
  - Hyponatraemia [Unknown]
  - Nausea [Unknown]
  - Vomiting [Unknown]
  - Hypofibrinogenaemia [Unknown]
  - Off label use [Unknown]
  - Infection [Unknown]
  - Mucosal inflammation [Unknown]

NARRATIVE: CASE EVENT DATE: 20221001
